FAERS Safety Report 5493801-2 (Version None)
Quarter: 2007Q4

REPORT INFORMATION
  Report Type: 
  Country: None (occurrence: None)
  Receive Date: 20071023
  Receipt Date: 20071015
  Transmission Date: 20080405
  Serious: Yes (Hospitalization)
  Sender: FDA-Public Use
  Company Number: DE-BOEHRINGER INGELHEIM PHARMACEUTICALS, INC.-2007-DE-05521DE

PATIENT
  Sex: Male
  Weight: 83 kg

DRUGS (8)
  1. AGGRENOX [Suspect]
     Indication: HAEMODILUTION
     Dosage: 200MG DIPYRIDAMOL + 25 MG ASS
     Dates: start: 20070227, end: 20070303
  2. AGGRENOX [Suspect]
     Dosage: 200MG DIPYRIDAMOL + 25 MG ASS
     Dates: start: 20070302, end: 20070303
  3. ENALALPRIL [Concomitant]
     Indication: HYPERTENSION
  4. NITRENDIPIN [Concomitant]
     Indication: HYPERTENSION
  5. LOCOL [Concomitant]
     Indication: BLOOD CHOLESTEROL INCREASED
  6. BAYOTENSIN [Concomitant]
     Dosage: 1-0-1
  7. ASPIRIN [Concomitant]
     Indication: PLATELET AGGREGATION INHIBITION
     Dosage: 0-1-0
  8. PANTOPRAZOLE SODIUM [Concomitant]
     Dosage: 0-0-1

REACTIONS (17)
  - BRAIN STEM INFARCTION [None]
  - DIZZINESS [None]
  - DRUG THERAPEUTIC INCOMPATIBILITY [None]
  - DYSARTHRIA [None]
  - DYSPHAGIA [None]
  - ENCEPHALOPATHY [None]
  - FACIAL PARESIS [None]
  - HEADACHE [None]
  - HYPERCHOLESTEROLAEMIA [None]
  - HYPERTENSION [None]
  - LACRIMATION INCREASED [None]
  - MONOPLEGIA [None]
  - MUSCULOSKELETAL STIFFNESS [None]
  - PARALYSIS [None]
  - RETINOPATHY HYPERTENSIVE [None]
  - SENSATION OF HEAVINESS [None]
  - SICCA SYNDROME [None]
